FAERS Safety Report 5743531-4 (Version None)
Quarter: 2008Q2

REPORT INFORMATION
  Report Type: 
  Country: None (occurrence: None)
  Receive Date: 20080519
  Receipt Date: 20080519
  Transmission Date: 20081010
  Serious: Yes (Hospitalization, Other)
  Sender: FDA-Public Use
  Company Number: None

PATIENT
  Sex: Female
  Weight: 81.6475 kg

DRUGS (1)
  1. MICARDIS [Suspect]
     Indication: HYPERTENSION
     Dosage: 80MG DAILY PO
     Route: 048
     Dates: start: 20031001, end: 20050301

REACTIONS (4)
  - LIMB INJURY [None]
  - NERVE COMPRESSION [None]
  - SARCOIDOSIS [None]
  - TENDON DISORDER [None]
